FAERS Safety Report 13326678 (Version 1)
Quarter: 2017Q1

REPORT INFORMATION
  Report Type: Spontaneous
  Country: US (occurrence: US)
  Receive Date: 20170312
  Receipt Date: 20170312
  Transmission Date: 20170428
  Serious: No
  Sender: FDA-Public Use
  Company Number: US-ELI_LILLY_AND_COMPANY-US201703000906

PATIENT
  Sex: Female

DRUGS (7)
  1. CHEMOTHERAPEUTICS [Concomitant]
     Active Substance: UNSPECIFIED INGREDIENT
     Indication: LYMPHOMA
     Dosage: UNK UNK, 3/W
  2. PREVACID [Concomitant]
     Active Substance: LANSOPRAZOLE
  3. PEPCID                             /00305201/ [Concomitant]
     Active Substance: ALUMINUM HYDROXIDE\MAGNESIUM CARBONATE
  4. ACYCLOVIR                          /00587301/ [Concomitant]
     Active Substance: ACYCLOVIR
  5. HUMULIN N [Suspect]
     Active Substance: INSULIN HUMAN
     Indication: HYPERGLYCAEMIA
     Dosage: UNK UNK, UNKNOWN
     Route: 065
     Dates: start: 201701
  6. PREDNISONE. [Concomitant]
     Active Substance: PREDNISONE
  7. HUMALOG [Suspect]
     Active Substance: INSULIN LISPRO
     Indication: HYPERGLYCAEMIA
     Dosage: UNK, UNKNOWN
     Route: 065
     Dates: start: 201701

REACTIONS (2)
  - Neuropathy peripheral [Unknown]
  - Underdose [Unknown]
